FAERS Safety Report 9039452 (Version 1)
Quarter: 2013Q1

REPORT INFORMATION
  Report Type: Report from Study
  Country: US (occurrence: US)
  Receive Date: 20130129
  Receipt Date: 20130129
  Transmission Date: 20140127
  Serious: No
  Sender: FDA-Public Use
  Company Number: US-ABBOTT-12P-163-0934575-00

PATIENT
  Sex: Male

DRUGS (5)
  1. HUMIRA 40 MG/0.8 ML PEN [Suspect]
     Indication: CROHN^S DISEASE
     Dosage: DAY ONE
     Route: 058
     Dates: start: 201204
  2. HUMIRA 40 MG/0.8 ML PEN [Suspect]
     Dosage: DAY 15
  3. HUMIRA 40 MG/0.8 ML PEN [Suspect]
  4. ASACOL EC [Concomitant]
     Indication: PRODUCT USED FOR UNKNOWN INDICATION
  5. SOLODYN ER [Concomitant]
     Indication: PRODUCT USED FOR UNKNOWN INDICATION

REACTIONS (2)
  - Injection site mass [Recovered/Resolved]
  - Injection site pruritus [Recovered/Resolved]
